FAERS Safety Report 9542741 (Version 1)
Quarter: 2013Q3

REPORT INFORMATION
  Report Type: Spontaneous
  Country: US (occurrence: US)
  Receive Date: 20130923
  Receipt Date: 20130923
  Transmission Date: 20140515
  Serious: No
  Sender: FDA-Public Use
  Company Number: US-PFIZER INC-2013272662

PATIENT
  Age: 69 Year
  Sex: Male
  Weight: 113 kg

DRUGS (2)
  1. EFFEXOR XR [Suspect]
     Dosage: 150 MG, UNK
  2. EFFEXOR XR [Suspect]
     Dosage: 37.5 MG, UNK
     Dates: start: 201307

REACTIONS (1)
  - Drug ineffective [Unknown]
